FAERS Safety Report 23808910 (Version 1)
Quarter: 2024Q2

REPORT INFORMATION
  Report Type: Spontaneous
  Country: US (occurrence: US)
  Receive Date: 20240502
  Receipt Date: 20240502
  Transmission Date: 20240716
  Serious: No
  Sender: FDA-Public Use
  Company Number: US-JNJFOC-20240442076

PATIENT
  Sex: Female

DRUGS (1)
  1. TYLENOL 8 HR ARTHRITIS PAIN [Suspect]
     Active Substance: ACETAMINOPHEN
     Indication: Product used for unknown indication
     Route: 065

REACTIONS (4)
  - Abdominal discomfort [Unknown]
  - Drug intolerance [Unknown]
  - Wrong technique in product usage process [Unknown]
  - Incorrect dose administered [Unknown]
